FAERS Safety Report 5653445-6 (Version None)
Quarter: 2008Q1

REPORT INFORMATION
  Report Type: 
  Country: None (occurrence: None)
  Receive Date: 20080306
  Receipt Date: 20080225
  Transmission Date: 20080703
  Serious: Yes (Hospitalization)
  Sender: FDA-Public Use
  Company Number: B0510689A

PATIENT
  Age: 84 Year
  Sex: Male

DRUGS (4)
  1. AUGMENTIN '125' [Suspect]
     Indication: LUNG DISORDER
     Route: 042
     Dates: start: 20080119, end: 20080121
  2. BACTRIM DS [Suspect]
     Indication: LUNG DISORDER
     Route: 048
     Dates: start: 20080125, end: 20080129
  3. TIENAM [Suspect]
     Indication: LUNG DISORDER
     Route: 048
     Dates: start: 20080122, end: 20080124
  4. GENTAMICIN [Suspect]
     Indication: LUNG DISORDER
     Route: 042
     Dates: start: 20080122, end: 20080124

REACTIONS (5)
  - BLOOD CULTURE POSITIVE [None]
  - CLOSTRIDIUM DIFFICILE COLITIS [None]
  - ENTEROBACTER INFECTION [None]
  - PYREXIA [None]
  - RENAL IMPAIRMENT [None]
